FAERS Safety Report 8336017-4 (Version None)
Quarter: 2012Q2

REPORT INFORMATION
  Report Type: 
  Country: None (occurrence: None)
  Receive Date: 20120501
  Receipt Date: 20120501
  Transmission Date: 20120825
  Serious: Yes (Other)
  Sender: FDA-Public Use
  Company Number: None

PATIENT
  Sex: Female

DRUGS (1)
  1. ADCIRCA [Suspect]
     Indication: PULMONARY ARTERIAL HYPERTENSION
     Dosage: 20 MG DAILY PO
     Route: 048
     Dates: start: 20120322, end: 20120331

REACTIONS (5)
  - HEADACHE [None]
  - PAIN [None]
  - BACK PAIN [None]
  - GAIT DISTURBANCE [None]
  - BONE PAIN [None]
